FAERS Safety Report 5061364-1 (Version None)
Quarter: 2006Q3

REPORT INFORMATION
  Report Type: 
  Country: None (occurrence: None)
  Receive Date: 20060719
  Receipt Date: 20060719
  Transmission Date: 20061208
  Serious: Yes (Hospitalization)
  Sender: FDA-Public Use
  Company Number: None

PATIENT
  Age: 54 Year
  Sex: Male

DRUGS (7)
  1. WARFARIN SODIUM [Suspect]
     Indication: CORONARY ARTERY DISEASE
     Dosage: 5 MG QD
     Dates: start: 20060204
  2. FUROSEMIDE [Concomitant]
  3. METOPROLOL TARTRATE [Concomitant]
  4. ISOSORBIDE DINITRATE [Concomitant]
  5. OMEPRAZOLE [Concomitant]
  6. FOSINOPRIL SODIUM [Concomitant]
  7. INSULIN REG + NPH [Concomitant]

REACTIONS (2)
  - INTERNATIONAL NORMALISED RATIO INCREASED [None]
  - LOSS OF CONSCIOUSNESS [None]
